FAERS Safety Report 4487340-5 (Version None)
Quarter: 2004Q4

REPORT INFORMATION
  Report Type: 
  Country: None (occurrence: None)
  Receive Date: 20041022
  Receipt Date: 20041008
  Transmission Date: 20050328
  Serious: Yes (Life-Threatening)
  Sender: FDA-Public Use
  Company Number: 2004GB02409

PATIENT
  Sex: Male

DRUGS (1)
  1. MERONEM [Suspect]

REACTIONS (2)
  - CARDIAC ARREST [None]
  - POST PROCEDURAL COMPLICATION [None]
